FAERS Safety Report 8653708 (Version 3)
Quarter: 2012Q4

REPORT INFORMATION
  Report Type: 
  Country: BR (occurrence: BR)
  Receive Date: 20120709
  Receipt Date: 20121210
  Transmission Date: 20130627
  Serious: Yes (Death, Hospitalization, Other)
  Sender: FDA-Public Use
  Company Number: BR-US-EMD SERONO, INC.-7144414

PATIENT
  Age: 76 None
  Sex: Male

DRUGS (14)
  1. REBIF [Suspect]
     Indication: PRIMARY PROGRESSIVE MULTIPLE SCLEROSIS
     Route: 058
     Dates: start: 20040728, end: 20121027
  2. PREGABALIN [Concomitant]
     Indication: PRODUCT USED FOR UNKNOWN INDICATION
  3. ALOIS (MEMANTINE) [Concomitant]
     Indication: PRODUCT USED FOR UNKNOWN INDICATION
  4. REMINYL [Concomitant]
     Indication: PRODUCT USED FOR UNKNOWN INDICATION
  5. ATENOLOL [Concomitant]
     Indication: PRODUCT USED FOR UNKNOWN INDICATION
  6. LOSARTAM (LOSARTAN) [Concomitant]
     Indication: PRODUCT USED FOR UNKNOWN INDICATION
  7. MACRODANTINA [Concomitant]
     Indication: URINARY TRACT INFECTION
  8. LEPONEX [Concomitant]
     Indication: PRODUCT USED FOR UNKNOWN INDICATION
  9. ANLODIPINO (AMLODIPINE) [Concomitant]
     Indication: PRODUCT USED FOR UNKNOWN INDICATION
  10. TAZOCIN [Concomitant]
     Indication: PRODUCT USED FOR UNKNOWN INDICATION
  11. MEROPENEN (MEROPENEM) [Concomitant]
     Indication: PRODUCT USED FOR UNKNOWN INDICATION
  12. TEICOPLANIN [Concomitant]
     Indication: PRODUCT USED FOR UNKNOWN INDICATION
  13. AMIKACIN [Concomitant]
     Indication: PRODUCT USED FOR UNKNOWN INDICATION
  14. POLYMYXIN [Concomitant]
     Indication: PRODUCT USED FOR UNKNOWN INDICATION

REACTIONS (18)
  - Lung infection [Fatal]
  - Endocarditis [Unknown]
  - Coma [Unknown]
  - Myelopathy [Unknown]
  - Convulsion [Unknown]
  - Urinary tract infection [Unknown]
  - Disease progression [Unknown]
  - Bedridden [Unknown]
  - Motor dysfunction [Unknown]
  - Decubitus ulcer [Unknown]
  - Musculoskeletal pain [Unknown]
  - Emotional disorder [Unknown]
  - Asthenia [Unknown]
  - Quality of life decreased [Unknown]
  - Neuralgia [Unknown]
  - Oedema peripheral [Unknown]
  - Arthralgia [Unknown]
  - Off label use [Unknown]
